FAERS Safety Report 19370246 (Version 1)
Quarter: 2021Q2

REPORT INFORMATION
  Report Type: Spontaneous
  Country: JP (occurrence: JP)
  Receive Date: 20210604
  Receipt Date: 20210604
  Transmission Date: 20210717
  Serious: Yes (Death, Congenital Anomaly, Other)
  Sender: FDA-Public Use
  Company Number: JP-MACLEODS PHARMACEUTICALS US LTD-MAC2021031324

PATIENT

DRUGS (2)
  1. LOSARTAN 50 MG [Suspect]
     Active Substance: LOSARTAN
     Indication: PRODUCT USED FOR UNKNOWN INDICATION
     Dosage: 50 MILLIGRAM, QD, DURING WEEKS 20?31 OF PREGNANCY
     Route: 064
  2. METHYLDOPA. [Concomitant]
     Active Substance: METHYLDOPA
     Indication: HYPERTENSION
     Dosage: 750 MILLIGRAM, QD
     Route: 064

REACTIONS (4)
  - Pulmonary hypoplasia [Fatal]
  - Microcephaly [Fatal]
  - Foetal exposure during pregnancy [Unknown]
  - Contraindicated product prescribed [Unknown]
